FAERS Safety Report 8008883-3 (Version None)
Quarter: 2011Q4

REPORT INFORMATION
  Report Type: 
  Country: None (occurrence: None)
  Receive Date: 20111227
  Receipt Date: 20111221
  Transmission Date: 20120403
  Serious: No
  Sender: FDA-Public Use
  Company Number: US-TEVA-314986USA

PATIENT
  Sex: Female
  Weight: 47.216 kg

DRUGS (3)
  1. PLAN B ONE-STEP [Suspect]
     Indication: POST COITAL CONTRACEPTION
     Dosage: 1.5 MILLIGRAM;
     Route: 048
     Dates: start: 20111205, end: 20111205
  2. ALPRAZOLAM [Concomitant]
     Indication: ANXIETY
     Dosage: 4 MILLIGRAM;
     Route: 048
     Dates: start: 20090101
  3. PLAN B ONE-STEP [Suspect]
     Dosage: 1.5 MILLIGRAM;
     Route: 048
     Dates: start: 20111209, end: 20111209

REACTIONS (5)
  - PELVIC PAIN [None]
  - BREAST PAIN [None]
  - BREAST TENDERNESS [None]
  - ABDOMINAL DISCOMFORT [None]
  - ABDOMINAL PAIN [None]
